FAERS Safety Report 4341077-1 (Version None)
Quarter: 2004Q2

REPORT INFORMATION
  Report Type: 
  Country: None (occurrence: None)
  Receive Date: 20040419
  Receipt Date: 20040209
  Transmission Date: 20050107
  Serious: Yes (Death, Life-Threatening, Hospitalization)
  Sender: FDA-Public Use
  Company Number: US-ROCHE-358442

PATIENT
  Age: 63 Year
  Sex: Female
  Weight: 66 kg

DRUGS (24)
  1. CAPECITABINE [Suspect]
     Indication: COLORECTAL CANCER
     Dosage: ACTUAL DOSE RECEIVED WAS 1800 MG BID GIVEN FROM DAY 1 TO DAY 14 OF A THREE WEEK CYCLE.
     Route: 048
     Dates: start: 20040120, end: 20040203
  2. OXALIPLATIN [Suspect]
     Indication: COLORECTAL CANCER
     Dosage: ACTUAL DOSE RECEIVED WAS 233 MG.
     Route: 042
     Dates: start: 20040120, end: 20040120
  3. WELLBUTRIN [Concomitant]
     Dosage: BASELINE MED.
  4. PROZAC [Concomitant]
     Dosage: BASELINE MED.
     Dates: start: 20040206, end: 20040211
  5. LEVOTHYROID [Concomitant]
     Dosage: BASELINE MED.
     Dates: start: 20040206, end: 20040218
  6. CALTRATE [Concomitant]
     Dosage: BASELINE MED.
  7. COUMADIN [Concomitant]
     Dosage: BASELINE MED.
  8. ACIPHEX [Concomitant]
     Dosage: BASELINE MED.
     Dates: end: 20040206
  9. PROTONIX [Concomitant]
     Dates: start: 20040206, end: 20040212
  10. ACETAMINOPHEN [Concomitant]
     Dates: start: 20040206, end: 20040217
  11. TEMAZEPAM [Concomitant]
     Dates: start: 20040211, end: 20040211
  12. CIPRO [Concomitant]
     Dates: start: 20040207, end: 20040211
  13. ZOFRAN [Concomitant]
     Dates: start: 20040207, end: 20040218
  14. AMBIEN [Concomitant]
     Dates: start: 20040208
  15. HALDOL [Concomitant]
     Dates: start: 20040209
  16. ATIVAN [Concomitant]
     Dates: start: 20040209, end: 20040213
  17. RISPERDAL [Concomitant]
     Dates: start: 20040210, end: 20040218
  18. SANDOSTATIN [Concomitant]
     Dates: start: 20040210, end: 20040218
  19. VITAMIN K TAB [Concomitant]
     Route: 050
     Dates: start: 20040211
  20. HEPARIN SODIUM [Concomitant]
     Dates: start: 20040213
  21. MULTI-VITAMIN [Concomitant]
     Dates: start: 20040207, end: 20040218
  22. NORMAL SALINE W POTASSIUM CHLORIDE [Concomitant]
     Dates: start: 20040210, end: 20040218
  23. MAALOX [Concomitant]
     Dates: start: 20040218, end: 20040219
  24. ETOMIDATE [Concomitant]
     Dates: start: 20040219, end: 20040219

REACTIONS (21)
  - ACIDOSIS [None]
  - AGITATION [None]
  - ATELECTASIS [None]
  - BRONCHOPNEUMONIA [None]
  - CANDIDIASIS [None]
  - CIRCULATORY COLLAPSE [None]
  - CONFUSIONAL STATE [None]
  - DEHYDRATION [None]
  - DIARRHOEA [None]
  - DISORIENTATION [None]
  - DYSPHAGIA [None]
  - ENCEPHALOPATHY [None]
  - HYDRONEPHROSIS [None]
  - HYPOTENSION [None]
  - ILEUS [None]
  - INTESTINAL OBSTRUCTION [None]
  - MUCOSAL INFLAMMATION [None]
  - NAUSEA [None]
  - RENAL FAILURE [None]
  - RESPIRATORY DISTRESS [None]
  - VOMITING [None]
